FAERS Safety Report 18702699 (Version 6)
Quarter: 2021Q3

REPORT INFORMATION
  Report Type: Spontaneous
  Country: AU (occurrence: AU)
  Receive Date: 20210105
  Receipt Date: 20210728
  Transmission Date: 20211014
  Serious: Yes (Hospitalization)
  Sender: FDA-Public Use
  Company Number: AU-VERTEX PHARMACEUTICALS-2020-024895

PATIENT
  Age: 2 Year
  Sex: Male

DRUGS (14)
  1. ORKAMBI [Suspect]
     Active Substance: IVACAFTOR\LUMACAFTOR
     Dosage: 100/125 MG HALF A DOSE IN AM
     Route: 048
     Dates: start: 20210310, end: 20210310
  2. VIT D [Concomitant]
     Active Substance: VITAMIN D NOS
  3. ORKAMBI [Suspect]
     Active Substance: IVACAFTOR\LUMACAFTOR
     Dosage: 2 DOSAGE FORM (TABLETS PER DAY) QD
     Route: 048
     Dates: start: 20210420
  4. ORKAMBI [Suspect]
     Active Substance: IVACAFTOR\LUMACAFTOR
     Dosage: 100/125 MG GRANULES HALF A DOSE IN AM
     Route: 048
     Dates: start: 20201222, end: 20201225
  5. VITAMIN K [Concomitant]
     Active Substance: PHYTONADIONE
  6. CALCIUM [Concomitant]
     Active Substance: CALCIUM
  7. RIFAXIMIN. [Suspect]
     Active Substance: RIFAXIMIN
     Indication: GASTROINTESTINAL BACTERIAL OVERGROWTH
     Dosage: UNK
     Route: 065
     Dates: end: 20201225
  8. PANZYTRAT 25^000 [Concomitant]
  9. VITAMIN E [Concomitant]
     Active Substance: .ALPHA.-TOCOPHEROL
  10. ORKAMBI [Suspect]
     Active Substance: IVACAFTOR\LUMACAFTOR
     Indication: CYSTIC FIBROSIS
     Dosage: 100/125 MG HALF A DOSE IN AM
     Route: 048
     Dates: start: 202004, end: 2020
  11. VITAMIN B [Concomitant]
     Active Substance: VITAMIN B
  12. ORKAMBI [Suspect]
     Active Substance: IVACAFTOR\LUMACAFTOR
     Dosage: 1 DOSAGE FORM, QD
     Route: 048
     Dates: start: 20210317
  13. VITAMIN A [RETINOL] [Concomitant]
     Active Substance: RETINOL
  14. VITAMIN C [Concomitant]
     Active Substance: ASCORBIC ACID

REACTIONS (1)
  - Urticaria [Recovered/Resolved]

NARRATIVE: CASE EVENT DATE: 20201225
